FAERS Safety Report 19379880 (Version 4)
Quarter: 2021Q3

REPORT INFORMATION
  Report Type: Report from Study
  Country: ES (occurrence: ES)
  Receive Date: 20210607
  Receipt Date: 20210702
  Transmission Date: 20211014
  Serious: Yes (Life-Threatening, Hospitalization)
  Sender: FDA-Public Use
  Company Number: ES-CELLTRION INC.-2021ES007490

PATIENT

DRUGS (15)
  1. SERTRALINE [Concomitant]
     Active Substance: SERTRALINE HYDROCHLORIDE
     Indication: DEPRESSION
     Dosage: 50 MG (1/24 H)
     Route: 048
  2. ULTRA LEVURA [SACCHAROMYCES BOULARDII] [Concomitant]
     Dosage: 250 MG, QD
     Route: 048
     Dates: start: 20210602
  3. PERTUZUMAB. [Suspect]
     Active Substance: PERTUZUMAB
     Dosage: 420 MG EVERY 3 WEEKS
     Route: 042
     Dates: start: 20210525, end: 20210615
  4. IXIA [Concomitant]
     Active Substance: OLMESARTAN MEDOXOMIL
     Indication: HYPERTENSION
     Dosage: 20 MG (1/24 H)
  5. LOPERAMIDA [LOPERAMIDE] [Concomitant]
     Dosage: 2 MG, QD
     Route: 048
     Dates: start: 20210531
  6. HERZUMA [Suspect]
     Active Substance: TRASTUZUMAB-PKRB
     Indication: PRODUCT USED FOR UNKNOWN INDICATION
     Dosage: 370 MG, EVERY 3 WEEKS
     Route: 042
     Dates: start: 20210515, end: 20210515
  7. HERZUMA [Suspect]
     Active Substance: TRASTUZUMAB-PKRB
     Dosage: 500 MG
     Route: 042
     Dates: start: 20210525
  8. DOCETAXEL. [Suspect]
     Active Substance: DOCETAXEL
     Dosage: 88 MG, EVERY 3 WEEKS
     Route: 042
     Dates: start: 20210525, end: 20210615
  9. CIPROFLOXACINO [CIPROFLOXACIN] [Concomitant]
     Dosage: 400 MG, BID
     Route: 048
     Dates: start: 20210608, end: 20210609
  10. CARBOPLATINO [Suspect]
     Active Substance: CARBOPLATIN
     Dosage: 350 MG EVERY 3 WEEKS
     Route: 042
     Dates: start: 20210525, end: 20210615
  11. SIMVASTATINA [Concomitant]
     Active Substance: SIMVASTATIN
     Indication: DYSLIPIDAEMIA
     Dosage: 20 MG (1/24 H)
     Route: 048
  12. PERTUZUMAB. [Suspect]
     Active Substance: PERTUZUMAB
     Indication: PRODUCT USED FOR UNKNOWN INDICATION
     Dosage: 840 MG
     Route: 042
     Dates: start: 20210525
  13. DOCETAXEL. [Suspect]
     Active Substance: DOCETAXEL
     Indication: PRODUCT USED FOR UNKNOWN INDICATION
     Dosage: 120 MG
     Route: 042
     Dates: start: 20210525
  14. CARBOPLATINO [Suspect]
     Active Substance: CARBOPLATIN
     Indication: PRODUCT USED FOR UNKNOWN INDICATION
     Dosage: 530 MG
     Route: 042
  15. CISPLATIN. [Suspect]
     Active Substance: CISPLATIN
     Indication: PRODUCT USED FOR UNKNOWN INDICATION
     Dosage: UNK

REACTIONS (11)
  - Diarrhoea [Recovered/Resolved]
  - Nausea [Not Recovered/Not Resolved]
  - Vomiting [Not Recovered/Not Resolved]
  - Gastrointestinal toxicity [Recovered/Resolved]
  - Vomiting [Recovered/Resolved]
  - Hypotension [Recovering/Resolving]
  - Neutropenia [Not Recovered/Not Resolved]
  - Nausea [Recovered/Resolved]
  - Febrile neutropenia [Not Recovered/Not Resolved]
  - Asthenia [Unknown]
  - Diarrhoea [Not Recovered/Not Resolved]

NARRATIVE: CASE EVENT DATE: 20210530
